FAERS Safety Report 4532047-9 (Version None)
Quarter: 2004Q4

REPORT INFORMATION
  Report Type: 
  Country: None (occurrence: None)
  Receive Date: 20041220
  Receipt Date: 20041208
  Transmission Date: 20050328
  Serious: Yes (Other)
  Sender: FDA-Public Use
  Company Number: JP-GLAXOSMITHKLINE-B0361794A

PATIENT
  Age: 40 Year
  Sex: Female

DRUGS (4)
  1. ZANTAC [Suspect]
     Indication: GASTRITIS
     Dosage: 100MG PER DAY
     Route: 042
     Dates: start: 20041010, end: 20041012
  2. NEUCEF [Suspect]
     Indication: COLITIS ISCHAEMIC
     Dosage: 1G TWICE PER DAY
     Route: 042
     Dates: start: 20041009, end: 20041012
  3. BERIZYM [Concomitant]
     Dosage: 3 PER DAY
     Route: 048
     Dates: start: 20041019, end: 20041207
  4. LAC B [Concomitant]
     Dosage: 1G THREE TIMES PER DAY
     Route: 048
     Dates: start: 20041009, end: 20041207

REACTIONS (5)
  - ALANINE AMINOTRANSFERASE INCREASED [None]
  - ASPARTATE AMINOTRANSFERASE INCREASED [None]
  - GAMMA-GLUTAMYLTRANSFERASE INCREASED [None]
  - HEPATIC FUNCTION ABNORMAL [None]
  - LIVER DISORDER [None]
